FAERS Safety Report 18958580 (Version 1)
Quarter: 2021Q1

REPORT INFORMATION
  Report Type: Spontaneous
  Country: US (occurrence: US)
  Receive Date: 20210302
  Receipt Date: 20210302
  Transmission Date: 20210420
  Serious: Yes (Life-Threatening, Hospitalization, Other)
  Sender: FDA-Public Use
  Company Number: US-BAUSCH-BL-2021-005831

PATIENT
  Age: 3 Hour
  Sex: Female

DRUGS (1)
  1. MAGNESIUM SULFATE. [Suspect]
     Active Substance: MAGNESIUM SULFATE
     Indication: PRODUCT USED FOR UNKNOWN INDICATION
     Route: 064

REACTIONS (7)
  - Hypermagnesaemia [Recovered/Resolved]
  - Hypercapnia [Recovered/Resolved]
  - Neonatal respiratory depression [Recovered/Resolved]
  - Neonatal respiratory failure [Recovered/Resolved]
  - Encephalopathy neonatal [Recovered/Resolved]
  - Toxicity to various agents [Recovered/Resolved]
  - Foetal exposure during pregnancy [Recovered/Resolved]
